FAERS Safety Report 11798517 (Version 1)
Quarter: 2015Q4

REPORT INFORMATION
  Report Type: Spontaneous
  Country: US (occurrence: US)
  Receive Date: 20151203
  Receipt Date: 20151203
  Transmission Date: 20160305
  Serious: No
  Sender: FDA-Public Use
  Company Number: US-REGENERON PHARMACEUTICALS, INC.-2015-11719

PATIENT

DRUGS (13)
  1. LISINOPRIL. [Concomitant]
     Active Substance: LISINOPRIL
     Dosage: UNK
  2. VITAMINS                           /00067501/ [Concomitant]
     Active Substance: VITAMINS
     Dosage: UNK
  3. FUROSEMIDE. [Concomitant]
     Active Substance: FUROSEMIDE
     Dosage: UNK
  4. POTASSIUM [Concomitant]
     Active Substance: POTASSIUM
     Dosage: UNK
  5. EYLEA [Suspect]
     Active Substance: AFLIBERCEPT
     Dosage: EVERY 4-5 WEEKS, OD
     Route: 031
     Dates: start: 20150630, end: 20150630
  6. LEXAPRO [Suspect]
     Active Substance: ESCITALOPRAM OXALATE
     Indication: PRODUCT USED FOR UNKNOWN INDICATION
     Dosage: UNK
     Dates: start: 20150618
  7. ASPIRIN                            /00002701/ [Concomitant]
     Active Substance: ASPIRIN
     Dosage: UNK
  8. EYLEA [Suspect]
     Active Substance: AFLIBERCEPT
     Indication: RETINAL VEIN OCCLUSION
     Dosage: EVERY 4 WEEKS, OD
     Route: 031
     Dates: start: 20150421
  9. SYNTHROID [Concomitant]
     Active Substance: LEVOTHYROXINE SODIUM
     Dosage: UNK
  10. RECLAST [Concomitant]
     Active Substance: ZOLEDRONIC ACID
     Dosage: UNK, ONCE A YEAR
  11. EYLEA [Suspect]
     Active Substance: AFLIBERCEPT
     Dosage: EVERY 4-5 WEEKS, OD
     Dates: start: 201508, end: 201508
  12. METOPROLOL [Concomitant]
     Active Substance: METOPROLOL
     Dosage: UNK
  13. EYLEA [Suspect]
     Active Substance: AFLIBERCEPT
     Dosage: EVERY 4 WEEKS, OD
     Route: 031
     Dates: start: 20150526, end: 20150526

REACTIONS (7)
  - Metamorphopsia [Not Recovered/Not Resolved]
  - Eyelid oedema [Unknown]
  - Diplopia [Unknown]
  - Vision blurred [Unknown]
  - Erythema of eyelid [Unknown]
  - Foreign body sensation in eyes [Unknown]
  - Hordeolum [Unknown]

NARRATIVE: CASE EVENT DATE: 2015
